FAERS Safety Report 10951040 (Version 1)
Quarter: 2015Q1

REPORT INFORMATION
  Report Type: Spontaneous
  Country: US (occurrence: None)
  Receive Date: 20150226
  Receipt Date: 20150226
  Transmission Date: 20150721
  Serious: Yes (Hospitalization)
  Sender: FDA-Public Use
  Company Number: TAP2005Q00352

PATIENT
  Age: 66 Year
  Sex: Female

DRUGS (3)
  1. VERAPAMIL [Concomitant]
     Active Substance: VERAPAMIL HYDROCHLORIDE
     Indication: HYPERTENSION
  2. LEVOXYL (LEVOTHYROXINE SODIUM) [Concomitant]
     Indication: HYPOTHYROIDISM
  3. PREVACID [Suspect]
     Active Substance: LANSOPRAZOLE
     Indication: GASTRITIS EROSIVE
     Route: 048
     Dates: start: 20050217, end: 20050225

REACTIONS (3)
  - Influenza like illness [None]
  - Vomiting [None]
  - Diarrhoea [None]

NARRATIVE: CASE EVENT DATE: 20050218
